FAERS Safety Report 10351689 (Version 1)
Quarter: 2014Q3

REPORT INFORMATION
  Report Type: Report from Study
  Country: FR (occurrence: FR)
  Receive Date: 20140730
  Receipt Date: 20140730
  Transmission Date: 20150326
  Serious: Yes (Hospitalization, Disabling)
  Sender: FDA-Public Use
  Company Number: PHHY2014FR091170

PATIENT
  Age: 58 Year
  Sex: Female
  Weight: 83.4 kg

DRUGS (2)
  1. CERTICAN [Suspect]
     Active Substance: EVEROLIMUS
     Dosage: 1 G, BID
     Route: 048
     Dates: start: 20140710
  2. CERTICAN [Suspect]
     Active Substance: EVEROLIMUS
     Indication: IMMUNOSUPPRESSION
     Dosage: 2 G, BID
     Route: 048
     Dates: start: 20120213, end: 20140709

REACTIONS (2)
  - Respiratory failure [Not Recovered/Not Resolved]
  - Pulmonary fibrosis [Not Recovered/Not Resolved]

NARRATIVE: CASE EVENT DATE: 20140224
